FAERS Safety Report 5413061-8 (Version None)
Quarter: 2007Q3

REPORT INFORMATION
  Report Type: 
  Country: None (occurrence: None)
  Receive Date: 20070813
  Receipt Date: 20070808
  Transmission Date: 20080115
  Serious: Yes (Death, Hospitalization)
  Sender: FDA-Public Use
  Company Number: US-PFIZER INC-2007062625

PATIENT
  Sex: Male
  Weight: 99 kg

DRUGS (9)
  1. IRINOTECAN HCL [Suspect]
     Indication: GLIOBLASTOMA MULTIFORME
     Dosage: DAILY DOSE:125MG/M2-FREQ:FREQUENCY: ON DAY 1, 8, 22, 29
     Route: 042
     Dates: start: 20070719, end: 20070719
  2. IRINOTECAN HCL [Suspect]
     Dosage: DAILY DOSE:80MG/M2-FREQ:FREQUENCY: ON DAY 1, 8, 22, 29
     Route: 042
     Dates: start: 20070726, end: 20070726
  3. TEMODAR [Suspect]
     Indication: GLIOBLASTOMA MULTIFORME
     Dosage: DAILY DOSE:200MG/M2-FREQ:FREQUENCY: DAYS 1-5
     Route: 048
     Dates: start: 20070719, end: 20070723
  4. WARFARIN SODIUM [Concomitant]
  5. LOTREL [Concomitant]
     Dosage: TEXT:10/20MG-FREQ:FREQUENCY: QD
  6. LASIX [Concomitant]
  7. TOPROL-XL [Concomitant]
  8. DECADRON [Concomitant]
  9. LIPITOR [Concomitant]

REACTIONS (11)
  - ADRENAL INSUFFICIENCY [None]
  - ARRHYTHMIA SUPRAVENTRICULAR [None]
  - ATRIAL FIBRILLATION [None]
  - DIARRHOEA [None]
  - HYPERGLYCAEMIA [None]
  - HYPOTENSION [None]
  - PANCYTOPENIA [None]
  - RENAL FAILURE [None]
  - RENAL FAILURE ACUTE [None]
  - TACHYCARDIA [None]
  - THROMBOCYTOPENIA [None]
